FAERS Safety Report 6616185-2 (Version None)
Quarter: 2010Q1

REPORT INFORMATION
  Report Type: 
  Country: None (occurrence: None)
  Receive Date: 20100305
  Receipt Date: 20100223
  Transmission Date: 20100710
  Serious: Yes (Life-Threatening, Disabling)
  Sender: FDA-Public Use
  Company Number: JP-ABBOTT-01P-087-0114485-00

PATIENT
  Sex: Male

DRUGS (27)
  1. KALETRA [Suspect]
     Indication: HIV INFECTION
     Route: 048
     Dates: start: 20001225, end: 20040424
  2. NORVIR [Suspect]
     Indication: HIV INFECTION
     Route: 048
     Dates: start: 19990619, end: 20001224
  3. NORVIR [Suspect]
     Route: 048
     Dates: start: 20040425, end: 20080919
  4. NORVIR [Suspect]
     Route: 048
     Dates: start: 20080920
  5. ABACAVIR SULFATE [Suspect]
     Indication: HIV INFECTION
     Route: 048
     Dates: start: 20000724, end: 20000725
  6. ABACAVIR SULFATE [Suspect]
     Route: 048
     Dates: start: 20011020, end: 20011027
  7. INDINAVIR [Suspect]
     Indication: HIV INFECTION
     Dates: start: 20000308, end: 20000524
  8. EFAVIRENZ [Suspect]
     Indication: HIV INFECTION
     Route: 048
     Dates: start: 20000724, end: 20000725
  9. EFAVIRENZ [Suspect]
     Route: 048
     Dates: start: 20000925, end: 20001002
  10. SANILUVUDINE [Suspect]
     Indication: HIV INFECTION
     Route: 048
     Dates: start: 20010401, end: 20011020
  11. PEG-INTRON [Suspect]
     Indication: HEPATITIS C
     Dates: start: 20020817, end: 20030712
  12. DIDANOSINE [Suspect]
     Indication: HIV INFECTION
     Route: 048
     Dates: start: 19941119, end: 20010721
  13. DIDANOSINE [Suspect]
     Route: 048
     Dates: start: 20010721, end: 20040514
  14. LAMIVUDINE [Suspect]
     Indication: HIV INFECTION
     Route: 048
     Dates: start: 20040515, end: 20080919
  15. SAQUINAVIR [Suspect]
     Indication: HIV INFECTION
     Route: 048
     Dates: start: 19990619, end: 20000318
  16. SAQUINAVIR [Suspect]
     Route: 048
     Dates: start: 20000524, end: 20001224
  17. COAGULATION FACTOR VIII [Concomitant]
     Indication: HAEMORRHAGE
     Dosage: 9-10 KU/MONTH
     Dates: start: 19991101
  18. COAGULATION FACTOR VIII [Concomitant]
     Route: 048
     Dates: start: 20010401
  19. RIBAVIRIN [Concomitant]
     Indication: HEPATITIS C
     Route: 048
     Dates: start: 20020717, end: 20030712
  20. RIBAVIRIN [Concomitant]
  21. ATAZANAVIR [Concomitant]
     Indication: HIV INFECTION
     Route: 048
     Dates: start: 20040425, end: 20080919
  22. TENOFOVIR [Concomitant]
     Indication: HIV INFECTION
     Route: 048
     Dates: start: 20040425, end: 20080919
  23. LEXIVA [Concomitant]
     Indication: HIV INFECTION
     Route: 048
     Dates: start: 20080920
  24. TRUVADA [Concomitant]
     Indication: HIV INFECTION
     Route: 048
     Dates: start: 20080920
  25. ISENTRESS [Concomitant]
     Indication: HIV INFECTION
     Route: 048
     Dates: start: 20080920
  26. AMLODIPINE BESYLATE [Concomitant]
     Indication: HYPERTENSION
     Dates: start: 20081031, end: 20090105
  27. OLMESARTAN MEDOXOMIL [Concomitant]
     Indication: HYPERTENSION
     Dates: start: 20081031

REACTIONS (10)
  - DIZZINESS [None]
  - FIBRIN DEGRADATION PRODUCTS INCREASED [None]
  - HEPATIC FUNCTION ABNORMAL [None]
  - INFLUENZA LIKE ILLNESS [None]
  - NAUSEA [None]
  - NERVOUS SYSTEM DISORDER [None]
  - PALPITATIONS [None]
  - PULMONARY HYPERTENSION [None]
  - TREMOR [None]
  - VISUAL IMPAIRMENT [None]
